FAERS Safety Report 18770711 (Version 1)
Quarter: 2021Q1

REPORT INFORMATION
  Report Type: Report from Study
  Country: US (occurrence: US)
  Receive Date: 20210122
  Receipt Date: 20210122
  Transmission Date: 20210419
  Serious: No
  Sender: FDA-Public Use
  Company Number: US-ACADIA PHARMACEUTICALS INC.-ACA-2020-PIM-004196

PATIENT
  Sex: Male

DRUGS (13)
  1. ERGOCALCIFEROL. [Concomitant]
     Active Substance: ERGOCALCIFEROL
  2. FLECAINIDE ACETATE. [Concomitant]
     Active Substance: FLECAINIDE ACETATE
  3. METOPROLOL TARTRATE. [Concomitant]
     Active Substance: METOPROLOL TARTRATE
  4. FLUDROCORTISONE ACETATE. [Concomitant]
     Active Substance: FLUDROCORTISONE ACETATE
  5. LINZESS [Concomitant]
     Active Substance: LINACLOTIDE
  6. NUPLAZID [Suspect]
     Active Substance: PIMAVANSERIN TARTRATE
     Indication: PARKINSON^S DISEASE
     Dosage: 34 MILLIGRAM, QD
     Route: 048
  7. ELIQUIS [Concomitant]
     Active Substance: APIXABAN
  8. MIDODRINE HCL [Concomitant]
     Active Substance: MIDODRINE HYDROCHLORIDE
  9. RASAGILINE MESYLATE. [Concomitant]
     Active Substance: RASAGILINE MESYLATE
  10. PANTOPRAZOLE SODIUM. [Concomitant]
     Active Substance: PANTOPRAZOLE SODIUM
  11. CARBIDOPA/LEVODOPA [Concomitant]
     Active Substance: CARBIDOPA\LEVODOPA
  12. METFORMIN HCL [Concomitant]
     Active Substance: METFORMIN HYDROCHLORIDE
  13. ZINC. [Concomitant]
     Active Substance: ZINC

REACTIONS (2)
  - Rash [Recovering/Resolving]
  - Hallucination, visual [Not Recovered/Not Resolved]
